FAERS Safety Report 6738553-0 (Version None)
Quarter: 2010Q2

REPORT INFORMATION
  Report Type: 
  Country: None (occurrence: None)
  Receive Date: 20100524
  Receipt Date: 20100517
  Transmission Date: 20101027
  Serious: Yes (Hospitalization)
  Sender: FDA-Public Use
  Company Number: DE-TEVA-235113ISR

PATIENT
  Age: 43 Year
  Sex: Female

DRUGS (2)
  1. RISPERIDONE [Suspect]
  2. CLOZAPINE [Suspect]

REACTIONS (1)
  - HEPATITIS [None]
